FAERS Safety Report 10465764 (Version 1)
Quarter: 2014Q3

REPORT INFORMATION
  Report Type: Spontaneous
  Country: DK (occurrence: DK)
  Receive Date: 20140921
  Receipt Date: 20140921
  Transmission Date: 20150326
  Serious: Yes (Hospitalization)
  Sender: FDA-Public Use
  Company Number: PHHY2014DK118963

PATIENT
  Age: 25 Year
  Sex: Male
  Weight: 63 kg

DRUGS (6)
  1. RIVOTRIL [Interacting]
     Active Substance: CLONAZEPAM
     Indication: SEDATIVE THERAPY
     Dosage: 2 MG, TID (STYRKE: 2 MG)
     Route: 048
  2. RITALIN [Suspect]
     Active Substance: METHYLPHENIDATE HYDROCHLORIDE
     Indication: ATTENTION DEFICIT/HYPERACTIVITY DISORDER
     Dosage: 30 MG, TID (STYRKE: 30 MG)
     Route: 048
     Dates: start: 2014, end: 20140902
  3. SUBOXONE [Interacting]
     Active Substance: BUPRENORPHINE HYDROCHLORIDE\NALOXONE HYDROCHLORIDE
     Indication: DRUG DEPENDENCE
     Dosage: 8 MG, QD
  4. RIVOTRIL [Interacting]
     Active Substance: CLONAZEPAM
     Dosage: UNK UKN, DOSE REDUCED
  5. QUETIAPINE ACCORD [Interacting]
     Active Substance: QUETIAPINE
     Indication: BIPOLAR DISORDER
     Dosage: 100 MG, BID
     Dates: end: 20140904
  6. QUETIAPINE ACCORD [Interacting]
     Active Substance: QUETIAPINE
     Dosage: UNK UKN, DOSE INCREASED

REACTIONS (2)
  - Drug interaction [Unknown]
  - Suicidal ideation [Recovering/Resolving]

NARRATIVE: CASE EVENT DATE: 20140802
